FAERS Safety Report 6373929-5 (Version None)
Quarter: 2009Q3

REPORT INFORMATION
  Report Type: 
  Country: None (occurrence: None)
  Receive Date: 20090924
  Receipt Date: 20090518
  Transmission Date: 20100115
  Serious: Yes (Other)
  Sender: FDA-Public Use
  Company Number: US-ASTRAZENECA-2009UW12855

PATIENT
  Age: 65 Year
  Sex: Male
  Weight: 78.9 kg

DRUGS (9)
  1. SEROQUEL [Suspect]
     Indication: ANXIETY
     Route: 048
     Dates: start: 20090101
  2. SEROQUEL [Suspect]
     Route: 048
     Dates: start: 20090101
  3. SEROQUEL [Suspect]
     Route: 048
     Dates: start: 20090101
  4. COMPAZINE [Concomitant]
  5. ATIVAN [Concomitant]
  6. DILAUDID [Concomitant]
     Indication: PAIN
  7. NORCO LIQUID [Concomitant]
     Indication: PAIN
  8. PREVACID [Concomitant]
  9. NETRAVITE [Concomitant]
     Indication: DIALYSIS

REACTIONS (7)
  - BALANCE DISORDER [None]
  - DYSPNOEA [None]
  - FACE OEDEMA [None]
  - GAIT DISTURBANCE [None]
  - HYPOTENSION [None]
  - NASAL CONGESTION [None]
  - RASH [None]
